FAERS Safety Report 15124463 (Version 1)
Quarter: 2018Q3

REPORT INFORMATION
  Report Type: Spontaneous
  Country: US (occurrence: US)
  Receive Date: 20180613
  Receipt Date: 20180613
  Transmission Date: 20181010
  Serious: No
  Sender: FDA-Public Use
  Company Number: None

PATIENT
  Age: 69 Year
  Sex: Male
  Weight: 99.06 kg

DRUGS (1)
  1. AMIODARONE [Suspect]
     Active Substance: AMIODARONE
     Indication: ATRIAL FIBRILLATION
     Route: 048
     Dates: start: 20140531, end: 20180517

REACTIONS (5)
  - Pyrexia [None]
  - Cough [None]
  - Wheezing [None]
  - Pulmonary toxicity [None]
  - Pleural effusion [None]

NARRATIVE: CASE EVENT DATE: 20180425
